FAERS Safety Report 7584169-6 (Version None)
Quarter: 2011Q2

REPORT INFORMATION
  Report Type: 
  Country: None (occurrence: None)
  Receive Date: 20110628
  Receipt Date: 20110628
  Transmission Date: 20111010
  Serious: No
  Sender: FDA-Public Use
  Company Number: None

PATIENT
  Age: 67 Year
  Sex: Female
  Weight: 52.6173 kg

DRUGS (2)
  1. CLARITHROMYCIN [Suspect]
     Indication: SINUS DISORDER
     Dosage: 500 MG TWICE DAILY
     Dates: start: 20110601, end: 20110605
  2. CLARITHROMYCIN [Suspect]
     Indication: BRONCHIAL DISORDER
     Dosage: 500 MG TWICE DAILY
     Dates: start: 20110601, end: 20110605

REACTIONS (2)
  - ARTHRALGIA [None]
  - MOVEMENT DISORDER [None]
